FAERS Safety Report 24675362 (Version 1)
Quarter: 2024Q4

REPORT INFORMATION
  Report Type: Report from Study
  Country: US (occurrence: US)
  Receive Date: 20241128
  Receipt Date: 20241128
  Transmission Date: 20250115
  Serious: Yes (Hospitalization)
  Sender: MERCK
  Company Number: US-009507513-2411USA011379

PATIENT
  Sex: Female
  Weight: 46.685 kg

DRUGS (3)
  1. SOTATERCEPT [Suspect]
     Active Substance: SOTATERCEPT
     Indication: Pulmonary arterial hypertension
     Dosage: VOLUME: 0.7 ML, Q3W, STRENGTH: 45 MG
     Route: 058
     Dates: start: 202410
  2. AMBRISENTAN [Concomitant]
     Active Substance: AMBRISENTAN
  3. TREPROSTINIL [Concomitant]
     Active Substance: TREPROSTINIL

REACTIONS (1)
  - Haemoptysis [Unknown]

NARRATIVE: CASE EVENT DATE: 20240101
